FAERS Safety Report 8778743 (Version 2)
Quarter: 2013Q3

REPORT INFORMATION
  Report Type: Spontaneous
  Country: US (occurrence: US)
  Receive Date: 20120913
  Receipt Date: 20130716
  Transmission Date: 20140515
  Serious: Yes (Other)
  Sender: FDA-Public Use
  Company Number: US-UCBSA-065319

PATIENT
  Age: 51 Year
  Sex: Female
  Weight: 74.3 kg

DRUGS (13)
  1. CIMZIA [Suspect]
     Dosage: FOR 2 YEARS
     Route: 058
  2. ISONIAZID [Suspect]
     Indication: MYCOBACTERIUM TUBERCULOSIS COMPLEX TEST POSITIVE
     Dosage: 300 MG
     Route: 048
     Dates: start: 2012, end: 20121126
  3. ZYRTEC [Concomitant]
     Route: 048
  4. IBUPROFEN [Concomitant]
     Dosage: 100 MG AS  REQUIRED
  5. LIBRAX [Concomitant]
     Dosage: 5-2.5 MG ONCE DAILY
     Route: 048
  6. LIDODERM [Concomitant]
     Dosage: 5%(700 MG/PATCH) AS REQUIRED
     Route: 061
  7. MELATONIN [Concomitant]
     Route: 048
  8. PREVACID [Concomitant]
     Route: 048
  9. PULMICORT [Concomitant]
     Dosage: 0.5 MG/2 ML AS REQUIRED
  10. SINGULAIR [Concomitant]
     Route: 048
  11. ALBUTEROL SULFATE [Concomitant]
     Dosage: 1.25 MG/3 ML 2 PUFFS EVERY HOURS
  12. ASACOL [Concomitant]
     Route: 048
  13. AUGMENTIN [Concomitant]

REACTIONS (7)
  - Mycobacterium tuberculosis complex test positive [Unknown]
  - Liver function test abnormal [Unknown]
  - Myalgia [Unknown]
  - Arthralgia [Unknown]
  - Abdominal pain [Unknown]
  - Back pain [Unknown]
  - Neck pain [Unknown]
